FAERS Safety Report 8287423-8 (Version None)
Quarter: 2012Q2

REPORT INFORMATION
  Report Type: 
  Country: None (occurrence: None)
  Receive Date: 20120416
  Receipt Date: 20120405
  Transmission Date: 20120825
  Serious: Yes (Hospitalization)
  Sender: FDA-Public Use
  Company Number: US-ASTRAZENECA-2012SE22552

PATIENT
  Age: 32 Year
  Sex: Female
  Weight: 49 kg

DRUGS (4)
  1. SEROQUEL XR [Suspect]
     Indication: BIPOLAR DISORDER
     Route: 048
     Dates: start: 20120115
  2. OMNARIS [Concomitant]
     Indication: MULTIPLE ALLERGIES
     Dosage: EVERYDAY
  3. CHANTIX [Concomitant]
  4. SEROQUEL XR [Suspect]
     Route: 048

REACTIONS (3)
  - INTRACRANIAL ANEURYSM [None]
  - IRRITABILITY [None]
  - PAIN IN EXTREMITY [None]
